FAERS Safety Report 24680735 (Version 1)
Quarter: 2024Q4

REPORT INFORMATION
  Report Type: Spontaneous
  Country: KR (occurrence: KR)
  Receive Date: 20241129
  Receipt Date: 20241129
  Transmission Date: 20250114
  Serious: Yes (Hospitalization, Other)
  Sender: NOVARTIS
  Company Number: KR-002147023-NVSC2024KR226381

PATIENT

DRUGS (1)
  1. KYMRIAH [Suspect]
     Active Substance: TISAGENLECLEUCEL
     Indication: Diffuse large B-cell lymphoma
     Dosage: UNK, ONCE/SINGLE
     Route: 042

REACTIONS (11)
  - Cytokine release syndrome [Unknown]
  - Obstructive airways disorder [Unknown]
  - Immune effector cell-associated neurotoxicity syndrome [Unknown]
  - Neoplasm progression [Unknown]
  - Acute myocardial infarction [Unknown]
  - Cardiac failure [Unknown]
  - Central nervous system neoplasm [Unknown]
  - Disease progression [Unknown]
  - Sepsis [Unknown]
  - Pneumonia [Unknown]
  - Neck mass [Unknown]
